FAERS Safety Report 9238030 (Version 1)
Quarter: 2013Q2

REPORT INFORMATION
  Report Type: Report from Study
  Country: US (occurrence: US)
  Receive Date: 20130418
  Receipt Date: 20130418
  Transmission Date: 20140414
  Serious: Yes (Hospitalization)
  Sender: FDA-Public Use
  Company Number: US-JNJFOC-20130112587

PATIENT
  Age: 51 Year
  Sex: Female

DRUGS (1)
  1. REMICADE [Suspect]
     Indication: RHEUMATOID ARTHRITIS
     Dosage: 100 MG DOSE RECONSTITUTED 400 MG
     Route: 042
     Dates: end: 20130128

REACTIONS (3)
  - Hypoxia [Recovered/Resolved]
  - Bronchitis [Recovered/Resolved]
  - Pneumonitis [Recovered/Resolved]
